FAERS Safety Report 15547544 (Version 1)
Quarter: 2018Q4

REPORT INFORMATION
  Report Type: Spontaneous
  Country: US (occurrence: US)
  Receive Date: 20181024
  Receipt Date: 20181024
  Transmission Date: 20190205
  Serious: No
  Sender: FDA-Public Use
  Company Number: US-PERRIGO-18US007815

PATIENT
  Sex: Female

DRUGS (1)
  1. BUDESONIDE. [Suspect]
     Active Substance: BUDESONIDE
     Indication: PRODUCT USED FOR UNKNOWN INDICATION
     Dosage: 9 MG DAILY FOR 2 MONTHS, 6 MG DAILY FOR 1 MONTH, THEN 3 MG DAILY FOR 1 MONTH
     Route: 048
     Dates: start: 2018

REACTIONS (6)
  - Skin striae [Unknown]
  - Incorrect product administration duration [Unknown]
  - Depression [Unknown]
  - Pain [Unknown]
  - Hunger [Unknown]
  - Depressed mood [Unknown]

NARRATIVE: CASE EVENT DATE: 2018
